FAERS Safety Report 10046476 (Version 1)
Quarter: 2014Q1

REPORT INFORMATION
  Report Type: Spontaneous
  Country: US (occurrence: US)
  Receive Date: 20140331
  Receipt Date: 20140331
  Transmission Date: 20141002
  Serious: No
  Sender: FDA-Public Use
  Company Number: US-BIOGENIDEC-2014BI027827

PATIENT
  Sex: Male

DRUGS (6)
  1. TECFIDERA [Suspect]
     Indication: MULTIPLE SCLEROSIS
     Route: 048
     Dates: start: 20130926
  2. PAXIL [Concomitant]
  3. COREG [Concomitant]
  4. ASA [Concomitant]
  5. WARFARIN [Concomitant]
  6. OXYCODONE [Concomitant]

REACTIONS (1)
  - Feeling abnormal [Unknown]
